FAERS Safety Report 9162111 (Version 2)
Quarter: 2013Q2

REPORT INFORMATION
  Report Type: Spontaneous
  Country: JP (occurrence: JP)
  Receive Date: 20130314
  Receipt Date: 20130617
  Transmission Date: 20140414
  Serious: Yes (Death, Life-Threatening, Other)
  Sender: FDA-Public Use
  Company Number: JP-MPIJNJ-2012-08544

PATIENT
  Sex: 0

DRUGS (16)
  1. VELCADE [Suspect]
     Indication: PLASMA CELL MYELOMA
     Dosage: 1.3 MG/M2, UNK
     Route: 042
     Dates: start: 20121031
  2. VELCADE [Suspect]
     Dosage: 1.8 MG, UNK
     Route: 042
     Dates: end: 20121121
  3. DEXAMETHASONE [Concomitant]
     Indication: PLASMA CELL MYELOMA
     Dosage: 20 MG, UNK
     Route: 048
     Dates: start: 20121031, end: 20121121
  4. ACICLOVIR [Concomitant]
     Indication: HERPES ZOSTER
  5. ALENDRONATE SODIUM [Concomitant]
     Indication: OSTEOPOROSIS
     Dosage: 35 MG, UNK
     Route: 048
  6. ESOMEPRAZOLE MAGNESIUM [Concomitant]
     Dosage: 20 MG, UNK
     Route: 048
     Dates: start: 20121031
  7. ALLOPURINOL BIOGARAN [Concomitant]
     Dosage: 100 MG, UNK
     Route: 048
     Dates: start: 20121031
  8. SODIUM GUALENATE [Concomitant]
     Dosage: UNK
     Dates: start: 20121031
  9. MECOBALAMIN [Concomitant]
     Dosage: 1500 UNK, UNK
     Route: 048
     Dates: start: 20121031
  10. VALACICLOVIR HYDROCHLORIDE [Concomitant]
     Dosage: 500 MG, UNK
     Route: 048
     Dates: start: 20121031
  11. BONALON                            /01220301/ [Concomitant]
     Indication: OSTEOPOROSIS
     Dosage: 35 MG, UNK
     Route: 048
  12. NEXIUM                             /01479302/ [Concomitant]
     Indication: PROPHYLAXIS
     Dosage: 20 MG, UNK
     Dates: start: 20121031
  13. ZYLORIC                            /00003301/ [Concomitant]
     Indication: PROPHYLAXIS
     Dosage: 100 MG, UNK
     Route: 048
     Dates: start: 20121031
  14. MARZULENE [Concomitant]
     Indication: PROPHYLAXIS
     Dosage: UNK
     Dates: start: 20121031
  15. METHYCOBAL                         /00324901/ [Concomitant]
     Indication: PROPHYLAXIS
  16. VALTREX [Concomitant]
     Indication: PROPHYLAXIS
     Dosage: 500 MG, UNK
     Dates: start: 20121031

REACTIONS (8)
  - Pneumonia staphylococcal [Fatal]
  - Acute respiratory distress syndrome [Fatal]
  - Septic shock [Fatal]
  - Neutrophil count decreased [Not Recovered/Not Resolved]
  - Circulatory collapse [Unknown]
  - Ventricular tachycardia [Unknown]
  - Blood creatine phosphokinase increased [Not Recovered/Not Resolved]
  - Platelet count decreased [Not Recovered/Not Resolved]
